FAERS Safety Report 9473812 (Version 2)
Quarter: 2013Q3

REPORT INFORMATION
  Report Type: Spontaneous
  Country: US (occurrence: US)
  Receive Date: 20130823
  Receipt Date: 20130823
  Transmission Date: 20140515
  Serious: Yes (Hospitalization, Other)
  Sender: FDA-Public Use
  Company Number: US-BRISTOL-MYERS SQUIBB COMPANY-17012543

PATIENT
  Age: 41 Year
  Sex: Male
  Weight: 65.76 kg

DRUGS (6)
  1. SPRYCEL [Suspect]
     Indication: CHRONIC MYELOID LEUKAEMIA
     Dosage: 2ND DOSE:(2) SPRYCEL 50 MG TABLETS DAILY
  2. ATIVAN [Concomitant]
  3. CYMBALTA [Concomitant]
     Route: 048
  4. NEXIUM [Concomitant]
  5. ALPRAZOLAM [Concomitant]
  6. ONDANSETRON [Concomitant]
     Dosage: AT BED TIME
     Route: 048

REACTIONS (8)
  - Muscle spasms [Unknown]
  - Musculoskeletal pain [Unknown]
  - Hypoaesthesia [Unknown]
  - Nausea [Unknown]
  - Diarrhoea [Unknown]
  - Weight increased [Unknown]
  - Exposure via father [Unknown]
  - Pregnancy [Unknown]
